FAERS Safety Report 7032352-0 (Version None)
Quarter: 2010Q4

REPORT INFORMATION
  Report Type: 
  Country: None (occurrence: None)
  Receive Date: 20101007
  Receipt Date: 20100803
  Transmission Date: 20110411
  Serious: Yes (Hospitalization)
  Sender: FDA-Public Use
  Company Number: CA-BRISTOL-MYERS SQUIBB COMPANY-15207863

PATIENT
  Age: 70 Year
  Sex: Female
  Weight: 100 kg

DRUGS (16)
  1. BLINDED: BRIVANIB ALANINATE [Suspect]
     Indication: COLORECTAL CANCER METASTATIC
     Route: 048
     Dates: start: 20100526, end: 20100705
  2. CETUXIMAB [Suspect]
     Indication: COLORECTAL CANCER METASTATIC
     Dosage: 840MG:26MAY10 525MG:01JUN10-12JUL10
     Route: 042
     Dates: start: 20100526, end: 20100712
  3. BLINDED: PLACEBO [Suspect]
     Indication: COLORECTAL CANCER METASTATIC
     Route: 048
     Dates: start: 20100526, end: 20100705
  4. HYZAAR [Concomitant]
     Indication: HYPERTENSION
     Dosage: ! D.F:50/12.5MG
     Dates: start: 19850101
  5. ASPIRIN [Concomitant]
     Indication: CARDIOVASCULAR EVENT PROPHYLAXIS
     Dates: start: 20080501, end: 20100712
  6. K-DUR [Concomitant]
     Indication: DIARRHOEA
     Dates: start: 20090401
  7. IMODIUM [Concomitant]
     Indication: DIARRHOEA
     Dates: start: 20080501
  8. SENOKOT [Concomitant]
     Indication: CONSTIPATION
     Dosage: 1 D.F:6-8MG
     Dates: start: 20081201
  9. TYLENOL [Concomitant]
     Indication: HEADACHE
     Dates: start: 20100526
  10. ANUSOL [Concomitant]
     Indication: PROCTALGIA
     Dosage: HS
     Dates: start: 20100621
  11. EMO-CORT [Concomitant]
     Indication: ACNE
     Dosage: 1 D.F=190 UNITS NOT SPECIFIED
     Dates: start: 20100608
  12. DALACIN [Concomitant]
     Dates: start: 20100531
  13. DOXYCYCLINE [Concomitant]
     Indication: ACNE
     Route: 048
     Dates: start: 20100601
  14. STEMETIL [Concomitant]
     Indication: VOMITING
     Route: 048
     Dates: start: 20100619
  15. ATIVAN [Concomitant]
     Indication: INSOMNIA
  16. CLOTRIMAZOLE [Concomitant]
     Indication: VULVOVAGINAL PRURITUS
     Dates: start: 20100709

REACTIONS (1)
  - INTESTINAL OBSTRUCTION [None]
